FAERS Safety Report 24776393 (Version 2)
Quarter: 2024Q4

REPORT INFORMATION
  Report Type: Spontaneous
  Country: US (occurrence: US)
  Receive Date: 20241226
  Receipt Date: 20241226
  Transmission Date: 20250115
  Serious: No
  Sender: NOVARTIS
  Company Number: US-002147023-NVSC2024US243645

PATIENT
  Sex: Female

DRUGS (1)
  1. COSENTYX [Suspect]
     Active Substance: SECUKINUMAB
     Indication: Product used for unknown indication
     Dosage: 300 MG/2ML
     Route: 058

REACTIONS (5)
  - Product use issue [Unknown]
  - Device deployment issue [Unknown]
  - Product administration error [Unknown]
  - Accidental exposure to product [Unknown]
  - Product dose omission issue [Unknown]
